FAERS Safety Report 10580983 (Version 1)
Quarter: 2014Q4

REPORT INFORMATION
  Report Type: Spontaneous
  Country: IT (occurrence: None)
  Receive Date: 20141110
  Receipt Date: 20141110
  Transmission Date: 20150529
  Serious: Yes (Hospitalization)
  Sender: FDA-Public Use
  Company Number: NSR_01662_2014

PATIENT
  Age: 17 Year
  Sex: Male

DRUGS (1)
  1. BACLOFEN. [Suspect]
     Active Substance: BACLOFEN
     Indication: DYSTONIA
     Dosage: (APPROXIMATELY 625 MG EACH EPISODE (NOT THE PRESCRIBED AMOUNT) ORAL), (DF)

REACTIONS (17)
  - Heart rate decreased [None]
  - Unresponsive to stimuli [None]
  - Toxicity to various agents [None]
  - Amnesia [None]
  - Coma [None]
  - Dyskinesia [None]
  - Headache [None]
  - Agitation [None]
  - Pupillary light reflex tests abnormal [None]
  - Substance use [None]
  - Intentional overdose [None]
  - Electroencephalogram abnormal [None]
  - Confusional state [None]
  - Altered state of consciousness [None]
  - Vomiting [None]
  - Vertigo [None]
  - Reflexes abnormal [None]
